FAERS Safety Report 6260951-2 (Version None)
Quarter: 2009Q3

REPORT INFORMATION
  Report Type: 
  Country: None (occurrence: None)
  Receive Date: 20090709
  Receipt Date: 20090707
  Transmission Date: 20100115
  Serious: Yes (Hospitalization)
  Sender: FDA-Public Use
  Company Number: US-BRISTOL-MYERS SQUIBB COMPANY-14693030

PATIENT
  Age: 71 Year
  Sex: Male

DRUGS (9)
  1. IXEMPRA KIT [Suspect]
     Indication: NON-SMALL CELL LUNG CANCER
     Dates: start: 20090618
  2. CARBOPLATIN [Suspect]
     Indication: NON-SMALL CELL LUNG CANCER
     Dates: start: 20090618
  3. SYMBICORT [Concomitant]
     Dosage: 2 DF = 2 PUFFS
  4. PREDNISONE [Concomitant]
  5. FLOMAX [Concomitant]
     Dosage: 1 DF = 0.4 (UNIT NOT SPECIFIED)
  6. XANAX [Concomitant]
     Dosage: 1 DF = 0.5 (UNIT NOT SPECIFIED)
  7. ALBUTEROL [Concomitant]
     Dosage: QID NEBULIZER
  8. ZOCOR [Concomitant]
  9. METOPROLOL [Concomitant]

REACTIONS (1)
  - ATRIAL FIBRILLATION [None]
